FAERS Safety Report 12591949 (Version 1)
Quarter: 2016Q3

REPORT INFORMATION
  Report Type: Spontaneous
  Country: US (occurrence: None)
  Receive Date: 20160725
  Receipt Date: 20160725
  Transmission Date: 20161109
  Serious: Yes (Disabling)
  Sender: FDA-Public Use
  Company Number: None

PATIENT
  Age: 30 Year
  Sex: Female
  Weight: 108.86 kg

DRUGS (1)
  1. MIRENA [Suspect]
     Active Substance: LEVONORGESTREL

REACTIONS (7)
  - Nausea [None]
  - Disorientation [None]
  - Unevaluable event [None]
  - Muscle spasms [None]
  - Depression [None]
  - Alopecia [None]
  - Post procedural complication [None]

NARRATIVE: CASE EVENT DATE: 20160721
